FAERS Safety Report 10534620 (Version 3)
Quarter: 2015Q1

REPORT INFORMATION
  Report Type: Spontaneous
  Country: JP (occurrence: JP)
  Receive Date: 20141022
  Receipt Date: 20150209
  Transmission Date: 20150720
  Serious: Yes (Other)
  Sender: FDA-Public Use
  Company Number: JP-GLAXOSMITHKLINE-JP2014JPN004087

PATIENT
  Sex: Female

DRUGS (2)
  1. LAMICTAL [Suspect]
     Active Substance: LAMOTRIGINE
     Indication: EPILEPSY
     Dosage: 50 MG, 1D
     Route: 064
  2. TEGRETOL [Concomitant]
     Active Substance: CARBAMAZEPINE
     Dosage: 400 MG, 1D

REACTIONS (2)
  - Deafness [Unknown]
  - Foetal exposure during pregnancy [Unknown]
